FAERS Safety Report 8075479-7 (Version None)
Quarter: 2012Q1

REPORT INFORMATION
  Report Type: 
  Country: None (occurrence: None)
  Receive Date: 20120120
  Receipt Date: 20120105
  Transmission Date: 20120608
  Serious: Yes (Hospitalization)
  Sender: FDA-Public Use
  Company Number: EU-2012-10005

PATIENT
  Age: 82 Year
  Sex: Male
  Weight: 80 kg

DRUGS (1)
  1. PLETAL [Suspect]
     Indication: PERIPHERAL ARTERIAL OCCLUSIVE DISEASE
     Dosage: 100 MG MILLIGRAM(S), BID, UNKNOWN
     Dates: start: 20110601, end: 20110705

REACTIONS (4)
  - FACE OEDEMA [None]
  - WEIGHT INCREASED [None]
  - OEDEMA PERIPHERAL [None]
  - LOCALISED OEDEMA [None]
